FAERS Safety Report 21370364 (Version 1)
Quarter: 2022Q3

REPORT INFORMATION
  Report Type: Spontaneous
  Country: KR (occurrence: KR)
  Receive Date: 20220923
  Receipt Date: 20220923
  Transmission Date: 20221026
  Serious: Yes (Death, Hospitalization, Other)
  Sender: FDA-Public Use
  Company Number: KR-ORGANON-O2209KOR001493

PATIENT
  Age: 64 Year
  Sex: Male
  Weight: 76 kg

DRUGS (40)
  1. REMERON [Suspect]
     Active Substance: MIRTAZAPINE
     Dosage: UNK
     Route: 048
     Dates: start: 20201208, end: 20210224
  2. OXYCODONE HYDROCHLORIDE [Concomitant]
     Active Substance: OXYCODONE HYDROCHLORIDE
     Indication: Abdominal pain
     Dosage: UNK
     Route: 042
  3. PROPACETAMOL HYDROCHLORIDE [Concomitant]
     Active Substance: PROPACETAMOL HYDROCHLORIDE
     Indication: Lymphadenitis
     Dosage: UNK
     Route: 042
  4. MEROPENEM [MEROPENEM SODIUM CARBONATE] [Concomitant]
     Indication: Lymphadenitis
     Dosage: UNK
     Route: 042
  5. CELECOXIB [Concomitant]
     Active Substance: CELECOXIB
     Dosage: UNK (FORMULATION REPORTED AS HARD CAPSULES, ACIDS)
     Route: 048
  6. MEPERIDINE HYDROCHLORIDE [Concomitant]
     Active Substance: MEPERIDINE HYDROCHLORIDE
     Indication: Abdominal pain
     Dosage: UNK
     Route: 030
  7. OXYCODONE HYDROCHLORIDE [Concomitant]
     Active Substance: OXYCODONE HYDROCHLORIDE
     Indication: Abdominal pain
     Dosage: UNK, (FORMULATION REPORTED AS TRADITIONAL TABLET)
     Route: 048
     Dates: start: 20210224, end: 20210224
  8. ACETYLCYSTEINE [Concomitant]
     Active Substance: ACETYLCYSTEINE
     Dosage: UNK
     Route: 042
     Dates: start: 20210224, end: 20210224
  9. CHLORPHENIRAMINE MALEATE [Concomitant]
     Active Substance: CHLORPHENIRAMINE MALEATE
     Dosage: UNK
     Route: 042
  10. DULOXETINE HYDROCHLORIDE [Concomitant]
     Active Substance: DULOXETINE HYDROCHLORIDE
     Dosage: UNK, (FORMULATION REPORTED AS ENTERIC CAPSULES, PELLETS)
     Route: 048
     Dates: start: 20210218, end: 20210224
  11. URSODIOL [Concomitant]
     Active Substance: URSODIOL
     Dosage: UNK (FORMULATION REPORTED AS TRADITIONAL TABLET)
     Route: 048
     Dates: start: 20210218, end: 20210224
  12. PRUCALOPRIDE SUCCINATE [Concomitant]
     Active Substance: PRUCALOPRIDE SUCCINATE
     Dosage: UNK,
     Route: 048
     Dates: start: 20190806, end: 20210302
  13. MAGNESIUM OXIDE [Concomitant]
     Active Substance: MAGNESIUM OXIDE
     Dosage: UNK, (FORMULATION REPORTED AS HARD CAPSULES, ACIDS)
     Route: 048
     Dates: start: 20190419, end: 20210302
  14. PREDNISOLONE [Concomitant]
     Active Substance: PREDNISOLONE
     Dosage: UNK, (FORMULATION REPORTED AS TRADITIONAL TABLET)
     Route: 048
     Dates: start: 20210223, end: 20210224
  15. MEGESTROL ACETATE [Concomitant]
     Active Substance: MEGESTROL ACETATE
     Dosage: UNK
     Route: 048
     Dates: start: 20201030, end: 20210224
  16. CALCIUM POLYCARBOPHIL [Concomitant]
     Active Substance: CALCIUM POLYCARBOPHIL
     Dosage: UNK
     Route: 048
  17. POLYETHYLENE GLYCOL 4000 [Concomitant]
     Active Substance: POLYETHYLENE GLYCOL 4000
     Dosage: UNK, (FORMULATION REPORTED AS CCIDS FOR SOLUTIONS)
     Route: 048
     Dates: start: 20210225, end: 20210225
  18. FUROSEMIDE [Concomitant]
     Active Substance: FUROSEMIDE
     Dosage: UNK
     Route: 030
  19. TEICOPLANIN [Concomitant]
     Active Substance: TEICOPLANIN
     Dosage: UNK (FORMULATION REPORTED AS INJECTION OF LYOPHILIZED POWDER FOR SOLUTION)
     Route: 042
  20. CEFEPIME HYDROCHLORIDE [Concomitant]
     Active Substance: CEFEPIME HYDROCHLORIDE
     Dosage: UNK
     Route: 042
  21. METRONIDAZOLE [Concomitant]
     Active Substance: METRONIDAZOLE
     Dosage: UNK
     Route: 042
  22. POTASSIUM CHLORIDE\SODIUM CHLORIDE [Concomitant]
     Active Substance: POTASSIUM CHLORIDE\SODIUM CHLORIDE
     Dosage: UNK
     Route: 042
  23. ALBUMIN HUMAN [Concomitant]
     Active Substance: ALBUMIN HUMAN
     Dosage: UNK
     Route: 042
     Dates: start: 20210226, end: 20210226
  24. METOCLOPRAMIDE HYDROCHLORIDE [Concomitant]
     Active Substance: METOCLOPRAMIDE HYDROCHLORIDE
     Dosage: UNK
     Route: 042
  25. LIDOCAINE HYDROCHLORIDE [Concomitant]
     Active Substance: LIDOCAINE HYDROCHLORIDE
     Dosage: UNK
     Route: 058
     Dates: start: 20210302, end: 20210302
  26. CHLORHEXIDINE GLUCONATE [Concomitant]
     Active Substance: CHLORHEXIDINE GLUCONATE
     Dosage: 15 MILLILITER
     Dates: start: 20210303, end: 20210306
  27. PANTOPRAZOLE SODIUM [Concomitant]
     Active Substance: PANTOPRAZOLE SODIUM
     Dosage: UNK
     Route: 042
  28. OFLOXACIN [Concomitant]
     Active Substance: OFLOXACIN
     Dosage: UNK
     Dates: start: 20210304, end: 20210306
  29. TRANEXAMIC ACID [Concomitant]
     Active Substance: TRANEXAMIC ACID
     Dosage: UNK
     Route: 042
     Dates: start: 20210305, end: 20210307
  30. CLOTRIMAZOLE [Concomitant]
     Active Substance: CLOTRIMAZOLE
     Dosage: UNK, (FORMULATION REPORTED AS EXTERNAL USE)
     Dates: start: 20210306, end: 20210306
  31. POTASSIUM CHLORIDE [Concomitant]
     Active Substance: POTASSIUM CHLORIDE
     Dosage: UNK
     Route: 048
     Dates: start: 20210306, end: 20210307
  32. MEROPENEM [Concomitant]
     Active Substance: MEROPENEM
     Dosage: UNK
     Route: 042
     Dates: start: 20210307, end: 20210324
  33. KETOROLAC TROMETHAMINE [Concomitant]
     Active Substance: KETOROLAC TROMETHAMINE
     Dosage: UNK
     Route: 042
     Dates: start: 20210309, end: 20210326
  34. FENTANYL CITRATE [Concomitant]
     Active Substance: FENTANYL CITRATE
     Dosage: UNK
     Route: 042
     Dates: start: 20210309, end: 20210326
  35. RAMOSETRON HYDROCHLORIDE [Concomitant]
     Active Substance: RAMOSETRON HYDROCHLORIDE
     Dosage: UNK
     Route: 042
     Dates: start: 20210309, end: 20210326
  36. QUETIAPINE FUMARATE [Concomitant]
     Active Substance: QUETIAPINE FUMARATE
     Dosage: UNK
     Route: 048
  37. CEFTRIAXONE SODIUM [Concomitant]
     Active Substance: CEFTRIAXONE SODIUM
     Dosage: UNK
     Route: 042
     Dates: start: 20210316, end: 20210319
  38. MUPIROCIN [Concomitant]
     Active Substance: MUPIROCIN
     Dosage: UNK, EXTERNAL USE
     Dates: start: 20210319, end: 20210319
  39. TRIAMCINOLONE ACETONIDE [Concomitant]
     Active Substance: TRIAMCINOLONE ACETONIDE
     Dosage: UNK, ORAL OINTMENT, ORAL CAVITY
     Route: 048
     Dates: start: 20210322, end: 20210322
  40. OLANZAPINE [Concomitant]
     Active Substance: OLANZAPINE
     Dosage: UNK
     Route: 048
     Dates: start: 20210323, end: 20210323

REACTIONS (6)
  - Sepsis [Fatal]
  - Abdominal pain [Fatal]
  - Retinal haemorrhage [Fatal]
  - Pruritus [Recovered/Resolved]
  - Hypokalaemia [Recovered/Resolved]
  - Skin abrasion [Recovered/Resolved]

NARRATIVE: CASE EVENT DATE: 20210301
